FAERS Safety Report 12172562 (Version 1)
Quarter: 2016Q1

REPORT INFORMATION
  Report Type: Report from Study
  Country: US (occurrence: US)
  Receive Date: 20160311
  Receipt Date: 20160311
  Transmission Date: 20160526
  Serious: Yes (Other)
  Sender: FDA-Public Use
  Company Number: US-DSJP-DSU-2016-108671

PATIENT

DRUGS (1)
  1. EDOXABAN [Suspect]
     Active Substance: EDOXABAN TOSYLATE
     Indication: ATRIAL FIBRILLATION
     Dosage: 30 MG, QD
     Route: 048
     Dates: start: 201511

REACTIONS (6)
  - Arthritis [Unknown]
  - Pelvic fracture [Unknown]
  - Back disorder [Unknown]
  - Fall [Unknown]
  - Wrist fracture [Unknown]
  - Haemorrhage [Unknown]
